FAERS Safety Report 6911416-3 (Version None)
Quarter: 2010Q3

REPORT INFORMATION
  Report Type: 
  Country: None (occurrence: None)
  Receive Date: 20100806
  Receipt Date: 20100727
  Transmission Date: 20110219
  Serious: Yes (Hospitalization)
  Sender: FDA-Public Use
  Company Number: US-JNJCH-2010017713

PATIENT
  Age: 6 Year

DRUGS (2)
  1. ASPIRIN [Suspect]
     Indication: PROPHYLAXIS
     Dosage: TEXT:UNSPECIFIED
     Route: 065
  2. HEPARIN [Suspect]
     Indication: PROPHYLAXIS
     Dosage: TEXT:UNSPECIFIED
     Route: 065

REACTIONS (5)
  - ISCHAEMIC STROKE [None]
  - MITOCHONDRIAL MYOPATHY [None]
  - PERICARDIAL HAEMORRHAGE [None]
  - SEPSIS [None]
  - WRONG DRUG ADMINISTERED [None]
